FAERS Safety Report 6551301-2 (Version None)
Quarter: 2010Q1

REPORT INFORMATION
  Report Type: 
  Country: None (occurrence: None)
  Receive Date: 20100120
  Receipt Date: 20091106
  Transmission Date: 20100710
  Serious: Yes (Other)
  Sender: FDA-Public Use
  Company Number: 1000011332

PATIENT
  Age: 46 Year
  Sex: Male

DRUGS (4)
  1. ESCITALOPRAM [Suspect]
     Indication: DEPRESSION
     Dosage: 5 MG (5 MG, 1 IN 1 D), ORAL
     Dates: start: 20090120
  2. ESCITALOPRAM [Suspect]
     Indication: DEPRESSION
     Dosage: 10 MG (10 MG, 1 IN 1 D), ORAL
     Route: 048
     Dates: end: 20090724
  3. ZOLPIDEM [Concomitant]
  4. GINKO BILOBA (TABLETS) [Concomitant]

REACTIONS (3)
  - ABDOMINAL PAIN [None]
  - FAECES HARD [None]
  - RECTAL HAEMORRHAGE [None]
